FAERS Safety Report 5447426-5 (Version None)
Quarter: 2007Q3

REPORT INFORMATION
  Report Type: 
  Country: None (occurrence: None)
  Receive Date: 20070905
  Receipt Date: 20070821
  Transmission Date: 20080115
  Serious: Yes (Hospitalization)
  Sender: FDA-Public Use
  Company Number: 2007-02841

PATIENT
  Age: 69 Year
  Sex: Male
  Weight: 107 kg

DRUGS (12)
  1. VELCADE [Suspect]
     Indication: MULTIPLE MYELOMA
     Dosage: 2.80 MG
     Dates: start: 20070604, end: 20070816
  2. DOXORUBICIN HCL [Suspect]
     Indication: MULTIPLE MYELOMA
     Dosage: 76.00 MG
     Dates: start: 20070604, end: 20070813
  3. ALLOPURINOL [Concomitant]
  4. OXYCONTIN [Concomitant]
  5. OXYCODONE HCL [Concomitant]
  6. FOLIC ACID [Concomitant]
  7. ACETYLSALICYLIC ACID SRT [Concomitant]
  8. BISOPROLOL FUMARATE [Concomitant]
  9. EZETIMIBE [Concomitant]
  10. DIAZEPAM [Concomitant]
  11. FUROSEMIDE [Concomitant]
  12. DEXAMETHASONE [Suspect]
     Indication: MULTIPLE MYELOMA

REACTIONS (7)
  - CHEST PAIN [None]
  - DIARRHOEA [None]
  - NAUSEA [None]
  - NEURALGIA [None]
  - NEUROPATHY PERIPHERAL [None]
  - NEUROTOXICITY [None]
  - PAIN IN EXTREMITY [None]
